FAERS Safety Report 23601345 (Version 1)
Quarter: 2024Q1

REPORT INFORMATION
  Report Type: Spontaneous
  Country: US (occurrence: None)
  Receive Date: 20240305
  Receipt Date: 20240305
  Transmission Date: 20240410
  Serious: Yes (Hospitalization)
  Sender: FDA-Public Use
  Company Number: None

PATIENT
  Age: 74 Year
  Sex: Male
  Weight: 82.6 kg

DRUGS (1)
  1. ABEMACICLIB [Suspect]
     Active Substance: ABEMACICLIB
     Indication: Bladder cancer
     Dosage: FREQUENCY : TWICE A DAY;?
     Route: 048
     Dates: start: 20240220, end: 20240302

REACTIONS (4)
  - Haematuria [None]
  - Blood creatinine increased [None]
  - Device related thrombosis [None]
  - Urinary retention [None]

NARRATIVE: CASE EVENT DATE: 20240303
